FAERS Safety Report 11984694 (Version 1)
Quarter: 2016Q1

REPORT INFORMATION
  Report Type: Report from Study
  Country: CA (occurrence: CA)
  Receive Date: 20160201
  Receipt Date: 20160201
  Transmission Date: 20160526
  Serious: Yes (Hospitalization)
  Sender: FDA-Public Use
  Company Number: CA-WARNER CHILCOTT, LLC-1047165

PATIENT
  Age: 76 Year
  Sex: Female

DRUGS (8)
  1. ASAPHEN [Concomitant]
     Active Substance: ASPIRIN
  2. ACTONEL [Suspect]
     Active Substance: RISEDRONATE SODIUM
     Route: 048
  3. OXYCODONE [Concomitant]
     Active Substance: OXYCODONE
  4. ACTEMRA [Suspect]
     Active Substance: TOCILIZUMAB
     Route: 058
  5. ESOMEPRAZOLE [Concomitant]
     Active Substance: ESOMEPRAZOLE
  6. PREDNISONE. [Concomitant]
     Active Substance: PREDNISONE
  7. RISEDRONATE SODIUM. [Concomitant]
     Active Substance: RISEDRONATE SODIUM
  8. SYNTHROID [Concomitant]
     Active Substance: LEVOTHYROXINE SODIUM

REACTIONS (3)
  - Back injury [Recovered/Resolved]
  - Spinal disorder [Recovered/Resolved]
  - Infected skin ulcer [Recovered/Resolved]
